FAERS Safety Report 22227138 (Version 1)
Quarter: 2023Q2

REPORT INFORMATION
  Report Type: Other
  Country: IN (occurrence: None)
  Receive Date: 20230419
  Receipt Date: 20230419
  Transmission Date: 20230721
  Serious: Yes (Other)
  Sender: FDA-Public Use
  Company Number: IN-ROCHE-3126220

PATIENT
  Age: 71 Year
  Sex: Female

DRUGS (1)
  1. TECENTRIQ [Suspect]
     Active Substance: ATEZOLIZUMAB
     Indication: Microsatellite instability cancer
     Dosage: ONGOING
     Route: 041
     Dates: start: 20220528

REACTIONS (7)
  - Renal injury [Unknown]
  - Off label use [Unknown]
  - Swelling face [Unknown]
  - Skin disorder [Unknown]
  - Dyspepsia [Unknown]
  - Arthralgia [Unknown]
  - Erythema [Unknown]
